FAERS Safety Report 7299144-9 (Version None)
Quarter: 2011Q1

REPORT INFORMATION
  Report Type: 
  Country: None (occurrence: None)
  Receive Date: 20110217
  Receipt Date: 20110209
  Transmission Date: 20110831
  Serious: Yes (Other)
  Sender: FDA-Public Use
  Company Number: JP-B.I. PHARMACEUTICALS,INC./RIDGEFIELD-2010-BP-14646NB

PATIENT
  Sex: Male
  Weight: 69.7 kg

DRUGS (17)
  1. MICOMBI COMBINATION [Suspect]
     Indication: HYPERTENSION
     Dosage: TELMISARTAN 40MG/HYDROCHLOROTHIAZIDE12.5MG
     Route: 048
     Dates: start: 20101111, end: 20101124
  2. KLARICID [Concomitant]
     Dosage: 200 MG
  3. BROACT [Concomitant]
     Dosage: 2 G
  4. PARIET [Concomitant]
     Dosage: 10 MG
  5. URINORM [Concomitant]
     Dosage: 50 MG
  6. METHYLCOBAL [Concomitant]
     Dosage: 1000 MCG
  7. MAGMITT [Concomitant]
     Dosage: 1980 MG
  8. LASIX [Concomitant]
     Dosage: 20 MG
  9. CRAVIT [Concomitant]
     Dosage: 250 MG
  10. ADALAT CC [Concomitant]
     Dosage: 40 MG
     Dates: start: 20101111
  11. VESICARE [Concomitant]
     Dosage: 5 MG
  12. URIEF [Concomitant]
     Dosage: 8 MG
  13. PERSANTIN [Concomitant]
     Dosage: 75 MG
  14. BACTRIM [Concomitant]
  15. NEUFAN [Concomitant]
     Dosage: 100 MG
  16. VFEND [Concomitant]
     Dosage: 400 MG
  17. KAYEXALATE [Concomitant]
     Dosage: 30 G

REACTIONS (2)
  - PLEURAL EFFUSION [None]
  - OEDEMA [None]
